FAERS Safety Report 12686350 (Version 1)
Quarter: 2016Q3

REPORT INFORMATION
  Report Type: Spontaneous
  Country: US (occurrence: US)
  Receive Date: 20160825
  Receipt Date: 20160825
  Transmission Date: 20161109
  Serious: No
  Sender: FDA-Public Use
  Company Number: US-JAZZ-2016-US-006937

PATIENT
  Sex: Female

DRUGS (20)
  1. XYREM [Suspect]
     Active Substance: SODIUM OXYBATE
     Dosage: 3 G SECOND DOSE
     Route: 048
  2. FLAXSEED [Concomitant]
     Active Substance: FLAX SEED
  3. XYREM [Suspect]
     Active Substance: SODIUM OXYBATE
     Dosage: 4 G FIRST DOSE
     Route: 048
  4. LORAZEPAM. [Concomitant]
     Active Substance: LORAZEPAM
  5. METOZOLV ODT [Concomitant]
     Active Substance: METOCLOPRAMIDE HYDROCHLORIDE
  6. XYREM [Suspect]
     Active Substance: SODIUM OXYBATE
     Dosage: 2 G THIRD DOSE
     Route: 048
  7. VITAMIN C [Concomitant]
     Active Substance: ASCORBIC ACID
  8. METOPROLOL. [Concomitant]
     Active Substance: METOPROLOL
  9. BUSPIRONE HCL [Concomitant]
     Active Substance: BUSPIRONE HYDROCHLORIDE
  10. VITAMIN D3 [Concomitant]
     Active Substance: CHOLECALCIFEROL
  11. DEXTROSTAT [Concomitant]
     Active Substance: DEXTROAMPHETAMINE SULFATE
  12. XYREM [Suspect]
     Active Substance: SODIUM OXYBATE
     Indication: CATAPLEXY
     Dosage: DOSE ADJUSTMENTS
     Route: 048
  13. CALCIUM CARBONATE. [Concomitant]
     Active Substance: CALCIUM CARBONATE
  14. RITALIN [Concomitant]
     Active Substance: METHYLPHENIDATE HYDROCHLORIDE
  15. AMBIEN [Concomitant]
     Active Substance: ZOLPIDEM TARTRATE
  16. VYVANSE [Concomitant]
     Active Substance: LISDEXAMFETAMINE DIMESYLATE
  17. XYREM [Suspect]
     Active Substance: SODIUM OXYBATE
     Indication: NARCOLEPSY
     Dosage: 0.75 G, BID
     Route: 048
     Dates: start: 200412, end: 200501
  18. HALOPERIDOL. [Concomitant]
     Active Substance: HALOPERIDOL
  19. MULTIVITAMIN [Concomitant]
     Active Substance: VITAMINS
  20. VITAMIN B6 [Concomitant]
     Active Substance: PYRIDOXINE HYDROCHLORIDE

REACTIONS (1)
  - Incorrect dose administered [Unknown]
